FAERS Safety Report 17112313 (Version 2)
Quarter: 2020Q1

REPORT INFORMATION
  Report Type: Spontaneous
  Country: FI (occurrence: FI)
  Receive Date: 20191204
  Receipt Date: 20200121
  Transmission Date: 20200409
  Serious: Yes (Other)
  Sender: FDA-Public Use
  Company Number: FI-BAYER-2019-213181

PATIENT
  Age: 45 Year
  Sex: Female

DRUGS (1)
  1. CIPROXIN 500 MG [Suspect]
     Active Substance: CIPROFLOXACIN
     Dosage: 1 DF, BID
     Dates: start: 20190909, end: 201909

REACTIONS (7)
  - Weight decreased [None]
  - Diarrhoea [Recovering/Resolving]
  - Abdominal pain upper [Not Recovered/Not Resolved]
  - Vomiting [Not Recovered/Not Resolved]
  - Intestinal ulcer [Unknown]
  - Abdominal distension [None]
  - Abdominal pain lower [None]

NARRATIVE: CASE EVENT DATE: 201909
